FAERS Safety Report 9253325 (Version 1)
Quarter: 2013Q2

REPORT INFORMATION
  Report Type: Spontaneous
  Country: US (occurrence: US)
  Receive Date: 20130424
  Receipt Date: 20130424
  Transmission Date: 20140414
  Serious: No
  Sender: FDA-Public Use
  Company Number: US-009507513-1304USA007565

PATIENT
  Sex: Male

DRUGS (2)
  1. ZOCOR [Suspect]
     Indication: HYPERCHOLESTEROLAEMIA
     Dosage: UNK
     Route: 048
  2. RISPERDAL [Concomitant]
     Indication: SCHIZOPHRENIA
     Dosage: EVERY TWO WEEKS

REACTIONS (3)
  - Dystonia [Not Recovered/Not Resolved]
  - Deformity [Not Recovered/Not Resolved]
  - Balance disorder [Not Recovered/Not Resolved]
